FAERS Safety Report 10083926 (Version 1)
Quarter: 2014Q2

REPORT INFORMATION
  Report Type: Spontaneous
  Country: CN (occurrence: CN)
  Receive Date: 20140417
  Receipt Date: 20140417
  Transmission Date: 20141212
  Serious: Yes (Other)
  Sender: FDA-Public Use
  Company Number: CN-PFIZER INC-2014104306

PATIENT
  Age: 44 Year
  Sex: Male
  Weight: 43 kg

DRUGS (1)
  1. VFEND [Suspect]
     Indication: FUNGAL INFECTION
     Dosage: UNK
     Route: 048

REACTIONS (5)
  - Weight decreased [Unknown]
  - Alopecia [Unknown]
  - Skin exfoliation [Unknown]
  - Constipation [Unknown]
  - Visual acuity reduced [Unknown]
